FAERS Safety Report 20233844 (Version 1)
Quarter: 2021Q4

REPORT INFORMATION
  Report Type: Report from Study
  Country: US (occurrence: US)
  Receive Date: 20211227
  Receipt Date: 20211227
  Transmission Date: 20220303
  Serious: Yes (Death, Other)
  Sender: FDA-Public Use
  Company Number: US-PFIZER INC-202101836916

PATIENT

DRUGS (5)
  1. TEMSIROLIMUS [Suspect]
     Active Substance: TEMSIROLIMUS
     Indication: Acute lymphocytic leukaemia recurrent
     Dosage: 7.5 MG/M2, CYCLIC (ON DAYS 1 AND 8, DL1)
     Route: 042
  2. TEMSIROLIMUS [Suspect]
     Active Substance: TEMSIROLIMUS
     Dosage: 10 MG/M2, CYCLIC (ON DAYS 1 AND 8, DL2)
     Route: 042
  3. TEMSIROLIMUS [Suspect]
     Active Substance: TEMSIROLIMUS
     Dosage: 15 MG/M2, CYCLIC (ON DAYS 1 AND 8, DL3)
     Route: 042
  4. ETOPOSIDE [Suspect]
     Active Substance: ETOPOSIDE
     Indication: Acute lymphocytic leukaemia recurrent
     Dosage: 100 MG/M2, CYCLIC, (DAILY DAYS 1-5)
     Route: 042
  5. CYCLOPHOSPHAMIDE [Suspect]
     Active Substance: CYCLOPHOSPHAMIDE
     Indication: Acute lymphocytic leukaemia recurrent
     Dosage: 440 MG/M2, CYCLIC, (DAILY DAYS 1-5)
     Route: 042

REACTIONS (6)
  - Cardiac arrest [Fatal]
  - Respiratory arrest [Fatal]
  - Pneumonia [Unknown]
  - Pneumonitis [Unknown]
  - Pericardial effusion [Unknown]
  - Pleural effusion [Unknown]
